FAERS Safety Report 9716986 (Version 2)
Quarter: 2013Q4

REPORT INFORMATION
  Report Type: Spontaneous
  Country: US (occurrence: US)
  Receive Date: 20131127
  Receipt Date: 20131127
  Transmission Date: 20140711
  Serious: No
  Sender: FDA-Public Use
  Company Number: US-GILEAD-2009-0020032

PATIENT
  Sex: Female
  Weight: 65.32 kg

DRUGS (12)
  1. LETAIRIS [Suspect]
     Indication: PULMONARY ARTERIAL HYPERTENSION
     Route: 048
     Dates: start: 20081121
  2. REVATIO [Concomitant]
     Route: 048
  3. LASIX [Concomitant]
     Route: 048
  4. INDERAL [Concomitant]
     Route: 048
  5. METFORMIN [Concomitant]
     Route: 048
  6. CRESTOR [Concomitant]
     Route: 048
  7. ADDERALL [Concomitant]
     Route: 048
  8. PROMETHAZINE [Concomitant]
     Route: 048
  9. TYLENOL #3 [Concomitant]
     Route: 048
  10. PREVACID [Concomitant]
     Route: 048
  11. MAGNESIUM [Concomitant]
     Route: 048
  12. VITAMIN D [Concomitant]
     Route: 048

REACTIONS (1)
  - Swelling face [Unknown]
